FAERS Safety Report 8934754 (Version 1)
Quarter: 2012Q4

REPORT INFORMATION
  Report Type: 
  Country: US (occurrence: US)
  Receive Date: 20121129
  Receipt Date: 20121129
  Transmission Date: 20130627
  Serious: No
  Sender: FDA-Public Use
  Company Number: US-PFIZER INC-2012299703

PATIENT
  Sex: Female
  Weight: 132 kg

DRUGS (4)
  1. ADVIL [Suspect]
     Indication: PAIN IN KNEE
     Dosage: unspecified dose, two capsules, daily
     Route: 048
  2. ADVIL [Suspect]
     Indication: BACK PAIN
     Dosage: UNK, daily
  3. MULTIVITAMINS [Concomitant]
     Dosage: UNK, as needed
  4. LOPRESSOR [Concomitant]
     Indication: BLOOD PRESSURE HIGH
     Dosage: 10 mg, daily

REACTIONS (2)
  - Feeling abnormal [Recovered/Resolved]
  - Abdominal discomfort [Recovered/Resolved]
